FAERS Safety Report 5730866-4 (Version None)
Quarter: 2008Q2

REPORT INFORMATION
  Report Type: 
  Country: None (occurrence: None)
  Receive Date: 20080507
  Receipt Date: 20080425
  Transmission Date: 20081010
  Serious: Yes (Death, Other)
  Sender: FDA-Public Use
  Company Number: CN-PFIZER INC-2008037085

PATIENT
  Age: 81 Year
  Sex: Male

DRUGS (6)
  1. VFEND [Suspect]
     Indication: PULMONARY MYCOSIS
     Route: 048
  2. TEICOPLANIN [Concomitant]
  3. VINORELBINE [Concomitant]
  4. ARSENIC COMPOUNDS [Concomitant]
  5. SOLU-MEDROL [Concomitant]
  6. ASPARTATE POTASSIUM W/MAGNESIUM ASPARTATE [Concomitant]

REACTIONS (4)
  - DEATH [None]
  - GASTROINTESTINAL HAEMORRHAGE [None]
  - JAUNDICE [None]
  - PANCYTOPENIA [None]
